FAERS Safety Report 11216545 (Version 2)
Quarter: 2015Q4

REPORT INFORMATION
  Report Type: Report from Study
  Country: US (occurrence: US)
  Receive Date: 20150624
  Receipt Date: 20151027
  Transmission Date: 20160304
  Serious: Yes (Life-Threatening, Hospitalization, Other)
  Sender: FDA-Public Use
  Company Number: US-ASTRAZENECA-2015SE43598

PATIENT
  Age: 935 Month
  Sex: Female
  Weight: 65.3 kg

DRUGS (7)
  1. DIGOXIN. [Concomitant]
     Active Substance: DIGOXIN
     Indication: HEART RATE IRREGULAR
     Route: 048
  2. BRILINTA [Suspect]
     Active Substance: TICAGRELOR
     Indication: STENT PLACEMENT
     Route: 048
     Dates: start: 20150314, end: 201504
  3. TORSEMIDE. [Concomitant]
     Active Substance: TORSEMIDE
     Indication: FLUID IMBALANCE
     Route: 048
  4. LIPITOR [Concomitant]
     Active Substance: ATORVASTATIN CALCIUM
     Indication: BLOOD CHOLESTEROL ABNORMAL
     Route: 048
  5. ELIQUIS [Concomitant]
     Active Substance: APIXABAN
     Indication: ANTICOAGULANT THERAPY
     Route: 048
     Dates: end: 201504
  6. LISINOPRIL. [Suspect]
     Active Substance: LISINOPRIL
     Route: 048
  7. NEOSPORIN (NEOMYCIN, BACITRACIN, POLYMYXIN) [Concomitant]
     Indication: LOCALISED INFECTION
     Route: 061

REACTIONS (10)
  - Dry mouth [Unknown]
  - Localised infection [Unknown]
  - Weight decreased [Unknown]
  - Internal haemorrhage [Recovered/Resolved]
  - Anaemia [Unknown]
  - Poor peripheral circulation [Unknown]
  - Myocardial infarction [Unknown]
  - Procedural hypotension [Recovered/Resolved]
  - Mental impairment [Unknown]
  - Faeces discoloured [Recovered/Resolved]

NARRATIVE: CASE EVENT DATE: 201503
